FAERS Safety Report 8711797 (Version 2)
Quarter: 2012Q4

REPORT INFORMATION
  Report Type: Report from Study
  Country: DE (occurrence: DE)
  Receive Date: 20120807
  Receipt Date: 20120829
  Transmission Date: 20130627
  Serious: Yes (Hospitalization)
  Sender: FDA-Public Use
  Company Number: DE-ROCHE-1095057

PATIENT
  Sex: Male
  Weight: 85 kg

DRUGS (4)
  1. MABTHERA [Suspect]
     Indication: RHEUMATOID ARTHRITIS
  2. PREDNISOLON [Concomitant]
     Indication: RHEUMATOID ARTHRITIS
  3. METHOTREXAT [Concomitant]
     Indication: RHEUMATOID ARTHRITIS
  4. PANTOPRAZOL [Concomitant]

REACTIONS (3)
  - Fall [Unknown]
  - Spinal fracture [Not Recovered/Not Resolved]
  - Joint injury [Not Recovered/Not Resolved]
